FAERS Safety Report 8620446 (Version 9)
Quarter: 2014Q2

REPORT INFORMATION
  Report Type: Spontaneous
  Country: US (occurrence: US)
  Receive Date: 20120618
  Receipt Date: 20140430
  Transmission Date: 20141212
  Serious: Yes (Hospitalization)
  Sender: FDA-Public Use
  Company Number: US-B.I. PHARMACEUTICALS,INC./RIDGEFIELD-2012-BP-13687BP

PATIENT
  Age: 77 Year
  Sex: Male
  Weight: 108.86 kg

DRUGS (31)
  1. PRADAXA [Suspect]
     Indication: CEREBROVASCULAR ACCIDENT PROPHYLAXIS
     Dosage: 300 MG
     Route: 065
     Dates: start: 20110128, end: 20120329
  2. PRADAXA [Suspect]
     Indication: THROMBOSIS PROPHYLAXIS
  3. PRADAXA [Suspect]
     Indication: ATRIAL FIBRILLATION
  4. ASPIRIN [Suspect]
     Indication: CARDIAC DISORDER
     Dosage: 81 MG
     Route: 065
     Dates: start: 2007
  5. AVODART [Concomitant]
     Indication: BENIGN PROSTATIC HYPERPLASIA
     Dosage: 0.05 MG
     Route: 065
     Dates: start: 2007
  6. DIOVAN [Concomitant]
     Dosage: 160 MG
     Route: 065
     Dates: start: 2007
  7. DILTIAZEM [Concomitant]
     Dosage: 240 MG
     Route: 065
     Dates: start: 2007
  8. HYDROCHLOROTHIAZIDE [Concomitant]
     Dosage: 25 MG
     Route: 065
     Dates: start: 2007
  9. LIPITOR [Concomitant]
     Dosage: 20 MG
     Route: 065
     Dates: start: 2007
  10. MELOXICAM [Concomitant]
     Route: 065
     Dates: start: 2011, end: 2012
  11. METFORMIN [Concomitant]
     Indication: DIABETES MELLITUS
     Dosage: 2000 MG
     Route: 065
     Dates: start: 2007
  12. OXYCODONE [Concomitant]
     Indication: PAIN
     Route: 065
     Dates: start: 2007
  13. TAMSULOSIN [Concomitant]
     Dosage: 0.4 MG
     Route: 065
     Dates: start: 2007
  14. VOLTAREN GEL [Concomitant]
     Indication: ARTHRITIS
     Route: 065
     Dates: start: 2007
  15. STOOL SOFTENER [Concomitant]
     Route: 065
     Dates: start: 2007
  16. OCULAR FORMULA [Concomitant]
     Route: 065
     Dates: start: 2007
  17. WELLBUTRIN SR [Concomitant]
     Indication: GENERALISED ANXIETY DISORDER
     Dosage: 300 MG
     Route: 065
  18. WELLBUTRIN SR [Concomitant]
     Indication: DEPRESSION
  19. TRAZODONE [Concomitant]
     Indication: INSOMNIA
     Route: 065
  20. NUVIGIL [Concomitant]
     Dosage: 150 MG
     Route: 065
  21. CYMBALTA [Concomitant]
     Indication: GENERALISED ANXIETY DISORDER
     Dosage: 30 MG
     Route: 065
  22. CYMBALTA [Concomitant]
     Indication: DEPRESSION
  23. LANTUS SOLOSTAR [Concomitant]
     Indication: DIABETES MELLITUS
     Dosage: 35 U
     Route: 065
  24. HUMULIN R [Concomitant]
     Route: 065
  25. CALCIMATE COMPLETE [Concomitant]
     Dosage: 1000 MG
     Route: 065
  26. VITAMIN D3 [Concomitant]
     Dosage: 1000 U
     Route: 065
  27. FOLIC ACID [Concomitant]
     Dosage: 1 MG
     Route: 065
  28. OMEGA-3 FISH OIL [Concomitant]
     Dosage: 1000 MG
     Route: 065
  29. COQ10 [Concomitant]
     Dosage: 100 MG
     Route: 065
  30. SUPER BETA PROSTATE [Concomitant]
     Dosage: 600 MG
     Route: 065
  31. ULTRA TRIM [Concomitant]
     Route: 065

REACTIONS (2)
  - Lower gastrointestinal haemorrhage [Unknown]
  - Iron deficiency anaemia [Unknown]
